FAERS Safety Report 10157270 (Version 1)
Quarter: 2014Q2

REPORT INFORMATION
  Report Type: Spontaneous
  Country: US (occurrence: None)
  Receive Date: 20140501
  Receipt Date: 20140501
  Transmission Date: 20141212
  Serious: Yes (Hospitalization)
  Sender: FDA-Public Use
  Company Number: None

PATIENT
  Age: 59 Year
  Sex: Female

DRUGS (7)
  1. WARFARIN [Suspect]
     Indication: ATRIAL FIBRILLATION
     Route: 048
     Dates: start: 20130822
  2. LOPERAMIDE [Concomitant]
  3. METOPROLOL [Concomitant]
  4. OMEGA 3 FATTY ACIDS [Concomitant]
  5. OMEPRAZOLE [Concomitant]
  6. OXYCODONE [Concomitant]
  7. ACETAMINOPHEN [Concomitant]

REACTIONS (3)
  - Stoma site haemorrhage [None]
  - Puncture site haemorrhage [None]
  - International normalised ratio increased [None]
